FAERS Safety Report 12468544 (Version 1)
Quarter: 2016Q2

REPORT INFORMATION
  Report Type: Report from Study
  Country: JP (occurrence: JP)
  Receive Date: 20160615
  Receipt Date: 20160615
  Transmission Date: 20160815
  Serious: Yes (Death, Other)
  Sender: FDA-Public Use
  Company Number: JP-CELGENEUS-JPN-2016060704

PATIENT

DRUGS (5)
  1. REVLIMID [Suspect]
     Active Substance: LENALIDOMIDE
     Indication: PRODUCT USED FOR UNKNOWN INDICATION
     Route: 048
  2. REVLIMID [Suspect]
     Active Substance: LENALIDOMIDE
     Route: 048
  3. REVLIMID [Suspect]
     Active Substance: LENALIDOMIDE
     Route: 048
  4. DEXAMETHASONE. [Suspect]
     Active Substance: DEXAMETHASONE
     Route: 065
  5. DEXAMETHASONE. [Suspect]
     Active Substance: DEXAMETHASONE
     Indication: PRODUCT USED FOR UNKNOWN INDICATION
     Route: 065

REACTIONS (31)
  - Coronary artery stenosis [Unknown]
  - Hepatic function abnormal [Unknown]
  - Thrombocytopenia [Unknown]
  - Neutropenia [Unknown]
  - Nasopharyngitis [Unknown]
  - Lower gastrointestinal haemorrhage [Unknown]
  - Cardiac failure acute [Unknown]
  - Hypophosphataemia [Unknown]
  - Urinary tract infection [Unknown]
  - Lymphopenia [Unknown]
  - Interstitial lung disease [Unknown]
  - Hypertension [Unknown]
  - Insomnia [Unknown]
  - Plasma cell myeloma [Fatal]
  - Deep vein thrombosis [Unknown]
  - Vomiting [Unknown]
  - Hyponatraemia [Unknown]
  - Constipation [Unknown]
  - Hypoalbuminaemia [Unknown]
  - Tumour lysis syndrome [Unknown]
  - Pneumonia aspiration [Unknown]
  - Leukopenia [Unknown]
  - Anaemia [Unknown]
  - Nausea [Unknown]
  - Pneumonia [Fatal]
  - Toxic skin eruption [Unknown]
  - Presyncope [Unknown]
  - Rash [Unknown]
  - Decreased appetite [Unknown]
  - Transaminases increased [Unknown]
  - Oedema peripheral [Unknown]
